FAERS Safety Report 14950005 (Version 1)
Quarter: 2018Q2

REPORT INFORMATION
  Report Type: Spontaneous
  Country: FR (occurrence: FR)
  Receive Date: 20180530
  Receipt Date: 20180530
  Transmission Date: 20180711
  Serious: Yes (Other)
  Sender: FDA-Public Use
  Company Number: FR-MERCK KGAA-2048638

PATIENT
  Sex: Female

DRUGS (1)
  1. NOVOTHYROX [Suspect]
     Active Substance: LEVOTHYROXINE SODIUM
     Indication: PRODUCT USED FOR UNKNOWN INDICATION

REACTIONS (17)
  - Flatulence [None]
  - Major depression [None]
  - Dizziness [None]
  - Headache [None]
  - Abdominal distension [None]
  - Abdominal pain upper [None]
  - Fatigue [None]
  - Irritability [None]
  - Affective disorder [None]
  - Decreased interest [None]
  - Anger [None]
  - Muscle spasms [None]
  - Insomnia [None]
  - Hot flush [None]
  - Abdominal pain [None]
  - Social avoidant behaviour [None]
  - Discomfort [None]
